FAERS Safety Report 20835678 (Version 2)
Quarter: 2022Q2

REPORT INFORMATION
  Report Type: Spontaneous
  Country: DE (occurrence: DE)
  Receive Date: 20220516
  Receipt Date: 20220614
  Transmission Date: 20220721
  Serious: No
  Sender: FDA-Public Use
  Company Number: DE-OTSUKA-2022_026943

PATIENT
  Age: 17 Year
  Sex: Female

DRUGS (2)
  1. ABILIFY [Interacting]
     Active Substance: ARIPIPRAZOLE
     Indication: Anxiety
     Dosage: 5 MG, QD (SINCE 2 TO 3 MONTHS)
     Route: 065
  2. DIENOGEST\ESTRADIOL VALERATE [Interacting]
     Active Substance: DIENOGEST\ESTRADIOL VALERATE
     Indication: Contraception
     Dosage: UNK
     Route: 065

REACTIONS (4)
  - Pain in extremity [Recovering/Resolving]
  - Amenorrhoea [Unknown]
  - Drug interaction [Unknown]
  - Product use in unapproved indication [Unknown]
